FAERS Safety Report 21496796 (Version 1)
Quarter: 2022Q4

REPORT INFORMATION
  Report Type: Spontaneous
  Country: FR (occurrence: FR)
  Receive Date: 20221022
  Receipt Date: 20221022
  Transmission Date: 20230113
  Serious: Yes (Other)
  Sender: FDA-Public Use
  Company Number: None

PATIENT
  Age: 72 Year
  Sex: Female
  Weight: 76 kg

DRUGS (4)
  1. LETROZOLE [Suspect]
     Active Substance: LETROZOLE
     Indication: Breast cancer metastatic
     Dosage: 2.5MG, FREQUENCY  TIME: 1 DAY, DURATION: 2 MONTHS, UNIT DOSE: 1 DF
     Dates: start: 202206
  2. KISQALI [Suspect]
     Active Substance: RIBOCICLIB
     Indication: Breast cancer metastatic
     Dosage: 600MG, FORM STRENGTH : 200 MG, FREQUENCY TIME : 1 DAY, DURATION: 15 DAYS, UNIT DOSE: 3 DF
     Dates: start: 20220720, end: 20220804
  3. ELETRIPTAN ARROW [Concomitant]
     Indication: Migraine
     Dosage: 40MG, UNIT DOSE: 1 DF
  4. EUTHYROX [Concomitant]
     Active Substance: LEVOTHYROXINE SODIUM
     Indication: Autoimmune hypothyroidism
     Dosage: 250UG, FREQUENCY TIME : 1 DAY, UNIT DOSE: 1 DF

REACTIONS (1)
  - Atrial fibrillation [Not Recovered/Not Resolved]

NARRATIVE: CASE EVENT DATE: 20220804
